FAERS Safety Report 13728291 (Version 5)
Quarter: 2020Q1

REPORT INFORMATION
  Report Type: Spontaneous
  Country: US (occurrence: US)
  Receive Date: 20170707
  Receipt Date: 20200128
  Transmission Date: 20200409
  Serious: Yes (Hospitalization)
  Sender: FDA-Public Use
  Company Number: US-JNJFOC-20170625009

PATIENT
  Age: 55 Year
  Sex: Male

DRUGS (2)
  1. XARELTO [Suspect]
     Active Substance: RIVAROXABAN
     Route: 048
     Dates: start: 20130215, end: 201306
  2. XARELTO [Suspect]
     Active Substance: RIVAROXABAN
     Indication: CARDIAC ABLATION
     Route: 048
     Dates: start: 201106

REACTIONS (6)
  - Ischaemic stroke [Unknown]
  - Internal haemorrhage [Recovering/Resolving]
  - Off label use [Unknown]
  - Pericardial haemorrhage [Recovering/Resolving]
  - Hypotension [Recovering/Resolving]
  - Product use in unapproved indication [Unknown]

NARRATIVE: CASE EVENT DATE: 20130215
